FAERS Safety Report 8514285-3 (Version None)
Quarter: 2012Q2

REPORT INFORMATION
  Report Type: 
  Country: None (occurrence: None)
  Receive Date: 20120406
  Receipt Date: 20111117
  Transmission Date: 20120825
  Serious: Yes (Life-Threatening, Hospitalization)
  Sender: FDA-Public Use
  Company Number: US-CYPR-2011-000076

PATIENT
  Sex: Male
  Weight: 79.3795 kg

DRUGS (6)
  1. CLOPIDOGREL [Suspect]
     Indication: ANTIPLATELET THERAPY
     Dosage: 75 MG QD, ORAL
     Route: 048
     Dates: start: 20110127
  2. GLYBURIDE [Concomitant]
  3. METFORMIN HYDROCHLORIDE [Concomitant]
  4. ASPIRIN [Suspect]
     Dosage: 81 MG, QD, ORAL
     Route: 048
     Dates: start: 20100125, end: 20111103
  5. ZOCOR [Concomitant]
  6. CYPHER STENT [Concomitant]

REACTIONS (1)
  - CEREBRAL INFARCTION [None]
